FAERS Safety Report 6654166-3 (Version None)
Quarter: 2010Q1

REPORT INFORMATION
  Report Type: 
  Country: None (occurrence: None)
  Receive Date: 20100326
  Receipt Date: 20100315
  Transmission Date: 20100710
  Serious: No
  Sender: FDA-Public Use
  Company Number: US-B.I. PHARMACEUTICALS,INC./RIDGEFIELD-2010-BP-03041BP

PATIENT
  Sex: Male

DRUGS (1)
  1. SPIRIVA [Suspect]
     Indication: CHRONIC OBSTRUCTIVE PULMONARY DISEASE
     Dosage: 18 MCG
     Route: 055
     Dates: start: 20080101

REACTIONS (7)
  - CATARACT [None]
  - DRUG INEFFECTIVE [None]
  - DRY MOUTH [None]
  - DYSPNOEA [None]
  - PRURITUS [None]
  - SPUTUM DISCOLOURED [None]
  - VISION BLURRED [None]
